FAERS Safety Report 8212106-X (Version None)
Quarter: 2012Q1

REPORT INFORMATION
  Report Type: 
  Country: None (occurrence: None)
  Receive Date: 20120315
  Receipt Date: 20120309
  Transmission Date: 20120608
  Serious: Yes (Other)
  Sender: FDA-Public Use
  Company Number: PHHY2012US017312

PATIENT
  Age: 67 Year
  Sex: Female

DRUGS (5)
  1. VALIUM [Concomitant]
  2. NAMENDA [Concomitant]
  3. EXELON [Suspect]
     Dosage: UNK UKN, UNK
  4. ARICEPT [Concomitant]
  5. RISPERIDONE [Concomitant]

REACTIONS (5)
  - HALLUCINATION [None]
  - SOMNOLENCE [None]
  - DEMENTIA ALZHEIMER'S TYPE [None]
  - GENERAL PHYSICAL HEALTH DETERIORATION [None]
  - ABNORMAL DREAMS [None]
